FAERS Safety Report 4971471-7 (Version None)
Quarter: 2006Q2

REPORT INFORMATION
  Report Type: 
  Country: None (occurrence: None)
  Receive Date: 20060413
  Receipt Date: 20051021
  Transmission Date: 20061013
  Serious: Yes (Hospitalization, Other)
  Sender: FDA-Public Use
  Company Number: PHHO2005IT16825

PATIENT
  Age: 15 Year
  Sex: Female
  Weight: 48 kg

DRUGS (3)
  1. DESFERAL [Suspect]
     Indication: HAEMOSIDEROSIS
     Dosage: 5 MG/KG, QD
     Route: 048
     Dates: start: 20041020, end: 20050202
  2. DESFERAL [Suspect]
     Dosage: 20 MG/KG, QD
     Route: 048
     Dates: start: 20050203, end: 20050808
  3. DESFERAL [Suspect]
     Dosage: 30 MG/KG, QD
     Route: 048
     Dates: start: 20050809, end: 20051021

REACTIONS (3)
  - ADRENOMEGALY [None]
  - ANGIOMYOLIPOMA [None]
  - LIPOMA EXCISION [None]
